FAERS Safety Report 7787058-7 (Version None)
Quarter: 2011Q3

REPORT INFORMATION
  Report Type: 
  Country: None (occurrence: None)
  Receive Date: 20110929
  Receipt Date: 20110917
  Transmission Date: 20111222
  Serious: Yes (Hospitalization)
  Sender: FDA-Public Use
  Company Number: US-DX529-2011DX000051

PATIENT
  Sex: Female

DRUGS (2)
  1. KALBITOR [Suspect]
     Indication: HEREDITARY ANGIOEDEMA
     Route: 065
  2. CINRYZE [Concomitant]
     Indication: HEREDITARY ANGIOEDEMA

REACTIONS (3)
  - HYPERSENSITIVITY [None]
  - SINUSITIS [None]
  - INJECTION SITE REACTION [None]
